FAERS Safety Report 16998264 (Version 1)
Quarter: 2019Q4

REPORT INFORMATION
  Report Type: Spontaneous
  Country: US (occurrence: US)
  Receive Date: 20191106
  Receipt Date: 20191106
  Transmission Date: 20200122
  Serious: No
  Sender: FDA-Public Use
  Company Number: US-TEVA-2019-US-1131583

PATIENT
  Age: 71 Year
  Sex: Female

DRUGS (1)
  1. BUPRENORPHINE 5 MCG/HR [Suspect]
     Active Substance: BUPRENORPHINE
     Indication: MYALGIA
     Route: 065

REACTIONS (1)
  - Drug ineffective [Unknown]

NARRATIVE: CASE EVENT DATE: 201909
